FAERS Safety Report 16411510 (Version 3)
Quarter: 2019Q3

REPORT INFORMATION
  Report Type: Spontaneous
  Country: US (occurrence: US)
  Receive Date: 20190610
  Receipt Date: 20190911
  Transmission Date: 20191004
  Serious: Yes (Other)
  Sender: FDA-Public Use
  Company Number: US-009507513-1906USA002799

PATIENT
  Age: 41 Year
  Sex: Female
  Weight: 97.96 kg

DRUGS (4)
  1. EFFIENT [Concomitant]
     Active Substance: PRASUGREL HYDROCHLORIDE
     Dosage: 10 MILLIGRAM, DAILY
     Route: 048
  2. CORGARD [Concomitant]
     Active Substance: NADOLOL
     Dosage: 40 MILLIGRAM, BID
     Route: 048
  3. ATIVAN [Concomitant]
     Active Substance: LORAZEPAM
     Dosage: 0.5 MILLIGRAM, PRN
     Route: 048
  4. NEXPLANON [Suspect]
     Active Substance: ETONOGESTREL
     Indication: CONTRACEPTION
     Dosage: 1 ROD, ONCE IN 3 YEARS, INSERTED IN THE UPPER ARM
     Route: 059
     Dates: start: 20190429, end: 20190515

REACTIONS (1)
  - Hypertensive crisis [Unknown]

NARRATIVE: CASE EVENT DATE: 20190510
